FAERS Safety Report 9454422 (Version 1)
Quarter: 2013Q3

REPORT INFORMATION
  Report Type: Report from Study
  Country: GB (occurrence: GB)
  Receive Date: 20130812
  Receipt Date: 20130812
  Transmission Date: 20140515
  Serious: Yes (Other)
  Sender: FDA-Public Use
  Company Number: GB-VERTEX PHARMACEUTICALS INC-2013-008701

PATIENT
  Age: 67 Year
  Sex: Female

DRUGS (5)
  1. VX-950 (TELAPREVIR) [Suspect]
     Indication: HEPATITIS C
     Dosage: TABLET, TID
     Route: 048
     Dates: start: 20130219
  2. RIBAVIRIN [Suspect]
     Indication: HEPATITIS C
     Dosage: DOSAGE FORM: TABLETS
     Route: 048
     Dates: end: 201306
  3. RIBAVIRIN [Suspect]
     Dosage: DOSAGE FORM: TABLETS
     Route: 048
     Dates: start: 201306
  4. RIBAVIRIN [Suspect]
     Dosage: DOSAGE FORM: TABLETS
     Route: 048
  5. PEGINTERFERON ALFA [Suspect]
     Indication: HEPATITIS C
     Dosage: INJECTION, QW
     Route: 058

REACTIONS (4)
  - Blood count abnormal [Unknown]
  - Cough [Not Recovered/Not Resolved]
  - Weight decreased [Not Recovered/Not Resolved]
  - Alopecia [Not Recovered/Not Resolved]
